FAERS Safety Report 10146957 (Version 1)
Quarter: 2014Q2

REPORT INFORMATION
  Report Type: Spontaneous
  Country: US (occurrence: US)
  Receive Date: 20140501
  Receipt Date: 20140501
  Transmission Date: 20141212
  Serious: Yes (Death)
  Sender: FDA-Public Use
  Company Number: US-GLAXOSMITHKLINE-A1070831A

PATIENT
  Age: 71 Year
  Sex: Female

DRUGS (6)
  1. VOTRIENT [Suspect]
     Indication: RENAL CANCER
     Dosage: 400MG PER DAY
     Route: 048
     Dates: start: 20140215
  2. ATENOLOL [Concomitant]
  3. LORAZEPAM [Concomitant]
  4. MULTIVITAMINS [Concomitant]
  5. PROCHLORPERAZINE [Concomitant]
  6. SIMVASTATIN [Concomitant]

REACTIONS (1)
  - Death [Fatal]
